FAERS Safety Report 18893975 (Version 1)
Quarter: 2021Q1

REPORT INFORMATION
  Report Type: Spontaneous
  Country: DE (occurrence: DE)
  Receive Date: 20210215
  Receipt Date: 20210215
  Transmission Date: 20210420
  Serious: Yes (Other)
  Sender: FDA-Public Use
  Company Number: NVSC2021DE029819

PATIENT
  Age: 91 Year
  Sex: Female

DRUGS (7)
  1. VALSARTAN ? 1 A PHARMA PLUS 80 MG/12,5 MG FILMTABLETTEN [Suspect]
     Active Substance: HYDROCHLOROTHIAZIDE\VALSARTAN
     Indication: PRODUCT USED FOR UNKNOWN INDICATION
     Dosage: 1 DF, QD (1X1)
     Route: 065
  2. VALSACOR [Suspect]
     Active Substance: VALSARTAN
     Indication: PRODUCT USED FOR UNKNOWN INDICATION
     Dosage: 1 DF, QD (1X1)
     Route: 065
  3. VALSARTAN/HCT AL [Suspect]
     Active Substance: HYDROCHLOROTHIAZIDE\VALSARTAN
     Indication: PRODUCT USED FOR UNKNOWN INDICATION
     Dosage: 1 DF, QD (1X1)
     Route: 065
  4. HCT DEXCEL [Suspect]
     Active Substance: HYDROCHLOROTHIAZIDE
     Indication: PRODUCT USED FOR UNKNOWN INDICATION
     Dosage: 1 DF, QD, (2X 1/2 IN KOMBINATION MIT VALSARTAN DURA 80 MG)
     Route: 065
  5. RAMILICH [Suspect]
     Active Substance: RAMIPRIL
     Indication: PRODUCT USED FOR UNKNOWN INDICATION
     Dosage: 10 MG, QD (2X1)
     Route: 065
  6. VALSARTAN DURA [Suspect]
     Active Substance: VALSARTAN
     Indication: PRODUCT USED FOR UNKNOWN INDICATION
     Dosage: 1 DF, QD (2X1/2 IN KOMBINATION MIT HCT DEXCEL 12.5 MG)
     Route: 065
  7. OLMESARTAN MEDOXOMIL. [Suspect]
     Active Substance: OLMESARTAN MEDOXOMIL
     Indication: PRODUCT USED FOR UNKNOWN INDICATION
     Dosage: 1 DF, QD (1X1)
     Route: 065

REACTIONS (6)
  - Drug intolerance [Unknown]
  - Dysuria [Unknown]
  - Bone pain [Unknown]
  - Panic reaction [Unknown]
  - Myalgia [Unknown]
  - Blood pressure increased [Unknown]
